FAERS Safety Report 10671086 (Version 1)
Quarter: 2014Q4

REPORT INFORMATION
  Report Type: Spontaneous
  Country: US (occurrence: US)
  Receive Date: 20141223
  Receipt Date: 20141223
  Transmission Date: 20150529
  Serious: No
  Sender: FDA-Public Use
  Company Number: US-BAYER-2014-183789

PATIENT
  Age: 61 Year
  Sex: Female
  Weight: 51 kg

DRUGS (7)
  1. ALEVE [Suspect]
     Active Substance: NAPROXEN SODIUM
     Indication: BACK PAIN
     Dosage: 1 DF, EVERY 8 HOURS
     Route: 048
     Dates: start: 20141110, end: 20141110
  2. NEXIUM [Suspect]
     Active Substance: ESOMEPRAZOLE MAGNESIUM
     Indication: GASTRIC DISORDER
     Dosage: 22.3 MG, QD IN THE MORNING
     Route: 048
     Dates: start: 20141121, end: 2014
  3. TUDORZA PRESSAIR [Concomitant]
     Active Substance: ACLIDINIUM BROMIDE
     Dosage: 400 MCG, BID
     Route: 045
  4. INDACATEROL [Concomitant]
     Active Substance: INDACATEROL
     Dosage: 75 MCG, QD
     Route: 048
  5. PEPTO-BISMOL [Suspect]
     Active Substance: BISMUTH SUBSALICYLATE\CALCIUM CARBONATE
     Indication: ABDOMINAL PAIN UPPER
     Dosage: 1 TABLESPOON, ONCE
     Route: 048
     Dates: start: 20141111, end: 20141111
  6. BENICAR [Concomitant]
     Active Substance: OLMESARTAN MEDOXOMIL
     Dosage: 20-12.5 MG, QD
     Route: 048
  7. METOPROLOL [Concomitant]
     Active Substance: METOPROLOL
     Dosage: 25 MG, QD
     Route: 048

REACTIONS (3)
  - Abdominal pain upper [Recovered/Resolved]
  - Reading disorder [Not Recovered/Not Resolved]
  - Visual field defect [Not Recovered/Not Resolved]

NARRATIVE: CASE EVENT DATE: 20141110
